FAERS Safety Report 10792174 (Version 3)
Quarter: 2015Q3

REPORT INFORMATION
  Report Type: Spontaneous
  Country: FR (occurrence: FR)
  Receive Date: 20150213
  Receipt Date: 20150707
  Transmission Date: 20151125
  Serious: Yes (Other)
  Sender: FDA-Public Use
  Company Number: FR-TEVA-539824ISR

PATIENT
  Age: 45 Year
  Sex: Male
  Weight: 84 kg

DRUGS (11)
  1. DAFALGAN [Concomitant]
     Active Substance: ACETAMINOPHEN
     Indication: PAIN
     Dosage: 4 DOSAGE FORMS DAILY;
     Route: 065
     Dates: start: 20091105
  2. ACTIQ [Suspect]
     Active Substance: FENTANYL CITRATE
     Dosage: 4 TO 8 INTAKE PER DAY
     Route: 048
     Dates: start: 20091126
  3. MIANSERINE TEVA 60 MG [Concomitant]
     Indication: DEPRESSION
     Dosage: 2 DOSAGE FORMS DAILY;
     Route: 048
     Dates: start: 20130423
  4. NOCTAMIDE 2 MG [Concomitant]
     Dosage: 2 MILLIGRAM DAILY;
     Route: 048
  5. METFORMINE 500 MG [Concomitant]
     Dosage: 500 MILLIGRAM DAILY;
     Route: 065
  6. VOLTARENE EMULGEL 1 PERCENT [Concomitant]
     Dosage: ONE APPLICATION OF 4 G TWO OR THREE TIMES A DAY IN MASSAGE
     Route: 065
  7. ACTIQ [Suspect]
     Active Substance: FENTANYL CITRATE
     Dosage: 4 TO 6 INTAKE PER DAY
     Route: 048
     Dates: start: 20150428
  8. DUROGESIC 100MCG/HOUR [Concomitant]
     Indication: PAIN
     Route: 062
     Dates: start: 20091126
  9. ACTIQ [Suspect]
     Active Substance: FENTANYL CITRATE
     Indication: PAIN
     Dosage: SINCE LESS OF 4 YEARS, 4 TO 6 INTAKE PER DAY
     Route: 048
     Dates: start: 20091126
  10. GABAPENTINE 800 MG [Concomitant]
     Indication: PAIN
     Dosage: 2400 MILLIGRAM DAILY;
     Route: 048
     Dates: start: 20091126
  11. DUROGESIC 100MCG/HOUR [Concomitant]
     Indication: DRUG WITHDRAWAL MAINTENANCE THERAPY

REACTIONS (4)
  - Tooth disorder [Unknown]
  - Type 2 diabetes mellitus [Not Recovered/Not Resolved]
  - Drug dependence [Recovering/Resolving]
  - Product use issue [Unknown]

NARRATIVE: CASE EVENT DATE: 20140425
